FAERS Safety Report 8333825-0 (Version None)
Quarter: 2012Q2

REPORT INFORMATION
  Report Type: 
  Country: None (occurrence: None)
  Receive Date: 20120503
  Receipt Date: 20120427
  Transmission Date: 20120825
  Serious: Yes (Hospitalization)
  Sender: FDA-Public Use
  Company Number: US-B.I. PHARMACEUTICALS,INC./RIDGEFIELD-2012-BP-09702BP

PATIENT
  Sex: Female

DRUGS (11)
  1. FERROUS SULFATE TAB [Concomitant]
     Indication: ANAEMIA
     Route: 048
  2. CYMBALTA [Concomitant]
     Dosage: 90 MG
     Route: 048
  3. PRADAXA [Suspect]
     Indication: ATRIAL FIBRILLATION
     Dosage: 300 MG
     Route: 048
     Dates: start: 20110601, end: 20120101
  4. AMBIEN [Concomitant]
     Dosage: 10 MG
     Route: 048
  5. SIMVASTATIN [Concomitant]
     Indication: BLOOD CHOLESTEROL INCREASED
     Route: 048
     Dates: start: 20090101
  6. ALPRAZOLAM [Concomitant]
     Route: 048
  7. ASPIRIN [Concomitant]
  8. COMBIVENT [Concomitant]
     Dates: start: 20120201
  9. SPIRIVA [Concomitant]
     Dates: start: 20120201
  10. GABAPENTIN [Concomitant]
     Route: 048
     Dates: start: 20110401
  11. GLIPIZIDE [Concomitant]
     Indication: DIABETES MELLITUS

REACTIONS (2)
  - CEREBROVASCULAR ACCIDENT [None]
  - ANAEMIA [None]
